FAERS Safety Report 10508986 (Version 11)
Quarter: 2015Q3

REPORT INFORMATION
  Report Type: Spontaneous
  Country: US (occurrence: US)
  Receive Date: 20141009
  Receipt Date: 20150721
  Transmission Date: 20151125
  Serious: Yes (Death, Hospitalization, Disabling, Other)
  Sender: FDA-Public Use
  Company Number: US-GLAXOSMITHKLINE-US2014GSK003060

PATIENT
  Age: 35 Year
  Sex: Female

DRUGS (6)
  1. FLOLAN [Suspect]
     Active Substance: EPOPROSTENOL SODIUM
     Dosage: 75 NG/KG/MIN, CO
     Dates: end: 20150621
  2. COUMADIN [Concomitant]
     Active Substance: WARFARIN SODIUM
  3. FLOLAN [Suspect]
     Active Substance: EPOPROSTENOL SODIUM
     Indication: PULMONARY ARTERIAL HYPERTENSION
     Dosage: 50 NG/KG/MIN (CONCENTRATIOIN 105,000 NG/ML, PUMP RATE 83 ML/DAY, VIAL STRENGTH 1.5 MG),CO
     Route: 042
     Dates: start: 20071105
  4. FLOLAN [Suspect]
     Active Substance: EPOPROSTENOL SODIUM
     Dosage: 50 NG/KG/MIN (CONCENTRATION 105,000, 83 ML/DAY, VIAL STRENGHT 1.5 MG), CO
     Route: 042
  5. FLOLAN [Suspect]
     Active Substance: EPOPROSTENOL SODIUM
     Dosage: 70 NG/KG/MIN, CO
     Route: 042
  6. FLOLAN [Suspect]
     Active Substance: EPOPROSTENOL SODIUM
     Dosage: 74 NG/KG/MIN (CONCENTRATION 150,000 NG/ML, PUMP RATE 86 ML/DAY, VIAL STRENGTH 1.5 MG), CO
     Route: 042

REACTIONS (7)
  - Hospitalisation [Unknown]
  - Renal failure [Fatal]
  - Death [Fatal]
  - Pulmonary arterial hypertension [Fatal]
  - Device related infection [Recovered/Resolved]
  - Right ventricular failure [Fatal]
  - Sepsis [Recovered/Resolved]

NARRATIVE: CASE EVENT DATE: 20140930
